FAERS Safety Report 4424666-5 (Version None)
Quarter: 2004Q3

REPORT INFORMATION
  Report Type: 
  Country: None (occurrence: None)
  Receive Date: 20040805
  Receipt Date: 20040723
  Transmission Date: 20050211
  Serious: Yes (Other)
  Sender: FDA-Public Use
  Company Number: 2004-FF-00201FF

PATIENT
  Age: 57 Year
  Sex: Male

DRUGS (10)
  1. ATROVENT [Suspect]
     Indication: RESPIRATORY FAILURE
     Dosage: MCG (MCG, 3 UDV DAILY)  IH
     Route: 055
     Dates: start: 20040201
  2. TRENTADIL     (BAMIFYLLINE HYDROCHLORIDE) [Concomitant]
  3. BRICANYL [Concomitant]
  4. SOLU-MEDROL [Concomitant]
  5. SYMBIOCORT(SYMBIOCORT TURBUHALER ^DRACO^) [Concomitant]
  6. PARIET(RABEPRAZOLE SODIUM) [Concomitant]
  7. BRONCHODUAL [Concomitant]
  8. URBANYL(CLOBAZAM) [Concomitant]
  9. ATARAX [Concomitant]
  10. OXYGEN [Concomitant]

REACTIONS (1)
  - OXYGEN CONSUMPTION INCREASED [None]
